FAERS Safety Report 16381042 (Version 1)
Quarter: 2019Q2

REPORT INFORMATION
  Report Type: Spontaneous
  Country: GB (occurrence: GB)
  Receive Date: 20190602
  Receipt Date: 20190602
  Transmission Date: 20190711
  Serious: Yes (Death, Hospitalization)
  Sender: FDA-Public Use
  Company Number: PHHY2019GB125402

PATIENT
  Age: 66 Year
  Sex: Female

DRUGS (3)
  1. MIDOSTAURIN [Suspect]
     Active Substance: MIDOSTAURIN
     Indication: CHRONIC MYELOMONOCYTIC LEUKAEMIA
  2. TRANEXAMIC ACID. [Concomitant]
     Active Substance: TRANEXAMIC ACID
     Indication: PRODUCT USED FOR UNKNOWN INDICATION
     Dosage: 1 G, TID
     Route: 065
  3. MIDOSTAURIN [Suspect]
     Active Substance: MIDOSTAURIN
     Indication: SYSTEMIC MASTOCYTOSIS
     Dosage: 100 MG, BID
     Route: 048
     Dates: start: 20180628

REACTIONS (5)
  - Loss of consciousness [Fatal]
  - Nausea [Fatal]
  - Hemiparesis [Fatal]
  - Subarachnoid haemorrhage [Fatal]
  - Headache [Fatal]

NARRATIVE: CASE EVENT DATE: 20190509
